FAERS Safety Report 7967475-2 (Version None)
Quarter: 2011Q4

REPORT INFORMATION
  Report Type: 
  Country: None (occurrence: None)
  Receive Date: 20111209
  Receipt Date: 20101028
  Transmission Date: 20120403
  Serious: No
  Sender: FDA-Public Use
  Company Number: US-GLAXOSMITHKLINE-A0889398A

PATIENT
  Age: 58 Year
  Sex: Female

DRUGS (7)
  1. LIPITOR [Concomitant]
  2. PAXIL [Concomitant]
  3. LISINOPRIL [Concomitant]
  4. SYNTHROID [Concomitant]
  5. DETROL LA [Concomitant]
  6. AVANDAMET [Suspect]
     Indication: TYPE 2 DIABETES MELLITUS
     Dosage: 1TAB TWICE PER DAY
     Route: 048
     Dates: start: 20090101, end: 20100820
  7. AMARYL [Concomitant]

REACTIONS (2)
  - NEPHROPATHY [None]
  - RENAL IMPAIRMENT [None]
